FAERS Safety Report 20701686 (Version 5)
Quarter: 2022Q2

REPORT INFORMATION
  Report Type: Report from Study
  Country: CA (occurrence: CA)
  Receive Date: 20220412
  Receipt Date: 20220517
  Transmission Date: 20220721
  Serious: Yes (Hospitalization, Other)
  Sender: FDA-Public Use
  Company Number: CA-JNJFOC-20220412705

PATIENT
  Age: 70 Year
  Sex: Female

DRUGS (1)
  1. REMICADE [Suspect]
     Active Substance: INFLIXIMAB
     Indication: Colitis ulcerative
     Dosage: LAST TREATMENT RECEIVED ON 18/MAR/2022
     Route: 042

REACTIONS (7)
  - Hospitalisation [Unknown]
  - Colectomy [Recovering/Resolving]
  - Decreased appetite [Unknown]
  - COVID-19 [Not Recovered/Not Resolved]
  - Diarrhoea [Unknown]
  - Frequent bowel movements [Unknown]
  - Norovirus test positive [Unknown]

NARRATIVE: CASE EVENT DATE: 20220401
